FAERS Safety Report 16759078 (Version 1)
Quarter: 2019Q3

REPORT INFORMATION
  Report Type: Spontaneous
  Country: DE (occurrence: DE)
  Receive Date: 20190830
  Receipt Date: 20190830
  Transmission Date: 20191005
  Serious: Yes (Other)
  Sender: FDA-Public Use
  Company Number: PHHY2019DE197558

PATIENT
  Age: 52 Year
  Sex: Male
  Weight: 79 kg

DRUGS (6)
  1. CIPROFLOXACIN 1A PHARMA [Suspect]
     Active Substance: CIPROFLOXACIN
     Indication: URINARY TRACT INFECTION
     Dosage: UNK
     Route: 065
  2. CIPROFLOXACIN RATIOPHARM [Suspect]
     Active Substance: CIPROFLOXACIN
     Indication: PROSTATITIS
     Dosage: 500 MG, QD (2-0-2, 2 X 500 MG)
     Route: 048
     Dates: start: 20190402
  3. IBUPROFEN. [Concomitant]
     Active Substance: IBUPROFEN
     Indication: PAIN MANAGEMENT
     Dosage: UNK
     Route: 065
  4. CIPROFLOXACIN 1A PHARMA [Suspect]
     Active Substance: CIPROFLOXACIN
     Indication: PROSTATITIS
     Dosage: UNK
     Route: 065
  5. SORTIS [Concomitant]
     Active Substance: ATORVASTATIN
     Indication: DYSLIPIDAEMIA
     Dosage: 10 MG, QD
     Route: 048
     Dates: start: 20131104
  6. CIPROFLOXACIN 1A PHARMA [Suspect]
     Active Substance: CIPROFLOXACIN
     Indication: PYREXIA
     Dosage: 500 MG, QD (1000 MILLIGRAM DAILY; 1-0-1, 2X500MGCIPRO 500 MG-1A PHARMA)
     Route: 048
     Dates: start: 20190312, end: 20190319

REACTIONS (6)
  - Plantar fasciitis [Recovering/Resolving]
  - Arthralgia [Recovering/Resolving]
  - Pain [Recovering/Resolving]
  - Tendon pain [Recovering/Resolving]
  - Impaired work ability [Recovering/Resolving]
  - Pain in extremity [Recovering/Resolving]

NARRATIVE: CASE EVENT DATE: 20190408
